FAERS Safety Report 25483178 (Version 1)
Quarter: 2025Q2

REPORT INFORMATION
  Report Type: Spontaneous
  Country: US (occurrence: US)
  Receive Date: 20250626
  Receipt Date: 20250626
  Transmission Date: 20250717
  Serious: Yes (Hospitalization, Other)
  Sender: MYLAN
  Company Number: US-MYLANLABS-2025M1053795

PATIENT
  Age: 54 Year
  Sex: Female

DRUGS (16)
  1. DOCETAXEL [Suspect]
     Active Substance: DOCETAXEL
     Indication: Adenocarcinoma gastric
  2. DOCETAXEL [Suspect]
     Active Substance: DOCETAXEL
     Route: 042
  3. DOCETAXEL [Suspect]
     Active Substance: DOCETAXEL
     Route: 042
  4. DOCETAXEL [Suspect]
     Active Substance: DOCETAXEL
  5. OXALIPLATIN [Suspect]
     Active Substance: OXALIPLATIN
     Indication: Adenocarcinoma gastric
  6. OXALIPLATIN [Suspect]
     Active Substance: OXALIPLATIN
     Route: 042
  7. OXALIPLATIN [Suspect]
     Active Substance: OXALIPLATIN
     Route: 042
  8. OXALIPLATIN [Suspect]
     Active Substance: OXALIPLATIN
  9. LEUCOVORIN CALCIUM [Suspect]
     Active Substance: LEUCOVORIN CALCIUM
     Indication: Adenocarcinoma gastric
  10. LEUCOVORIN CALCIUM [Suspect]
     Active Substance: LEUCOVORIN CALCIUM
     Route: 042
  11. LEUCOVORIN CALCIUM [Suspect]
     Active Substance: LEUCOVORIN CALCIUM
     Route: 042
  12. LEUCOVORIN CALCIUM [Suspect]
     Active Substance: LEUCOVORIN CALCIUM
  13. FLUOROURACIL [Suspect]
     Active Substance: FLUOROURACIL
     Indication: Adenocarcinoma gastric
  14. FLUOROURACIL [Suspect]
     Active Substance: FLUOROURACIL
     Route: 042
  15. FLUOROURACIL [Suspect]
     Active Substance: FLUOROURACIL
     Route: 042
  16. FLUOROURACIL [Suspect]
     Active Substance: FLUOROURACIL

REACTIONS (4)
  - Diabetic ketoacidosis [Unknown]
  - Streptococcal bacteraemia [Unknown]
  - Disease progression [Unknown]
  - Drug ineffective [Unknown]
